FAERS Safety Report 4687259-0 (Version None)
Quarter: 2005Q2

REPORT INFORMATION
  Report Type: 
  Country: None (occurrence: None)
  Receive Date: 20050608
  Receipt Date: 20050527
  Transmission Date: 20051028
  Serious: Yes (Other)
  Sender: FDA-Public Use
  Company Number: USA-2002-0003251

PATIENT
  Age: 37 Year
  Sex: Male

DRUGS (6)
  1. OXYCONTIN [Suspect]
     Indication: PAIN
     Dosage: 40 MG, TID
     Dates: start: 20000101, end: 20000801
  2. HEROIN (DIAMORPHINE) [Suspect]
  3. VALIUM [Suspect]
  4. XANAX [Suspect]
  5. COCAINE (COCAINE) [Suspect]
  6. ALCOHOL (ETHANOL) [Concomitant]

REACTIONS (20)
  - ABDOMINAL PAIN [None]
  - ANXIETY [None]
  - DEPRESSION [None]
  - DIARRHOEA [None]
  - DRUG DEPENDENCE [None]
  - DRUG WITHDRAWAL SYNDROME [None]
  - HEADACHE [None]
  - HYPERHIDROSIS [None]
  - INSOMNIA [None]
  - IRRITABILITY [None]
  - NAUSEA [None]
  - NERVOUSNESS [None]
  - OVERDOSE [None]
  - PILOERECTION [None]
  - POLYSUBSTANCE ABUSE [None]
  - RHINORRHOEA [None]
  - SOCIAL PROBLEM [None]
  - SUICIDAL IDEATION [None]
  - TREMOR [None]
  - VOMITING [None]
